FAERS Safety Report 8275531-7 (Version None)
Quarter: 2012Q2

REPORT INFORMATION
  Report Type: 
  Country: None (occurrence: None)
  Receive Date: 20120411
  Receipt Date: 20120406
  Transmission Date: 20120825
  Serious: Yes (Other)
  Sender: FDA-Public Use
  Company Number: AT-AMGEN-AUTSP2012022374

PATIENT
  Sex: Female

DRUGS (7)
  1. DIAMICRON [Concomitant]
  2. ALPRAZOLAM [Concomitant]
  3. PROLIA [Suspect]
     Indication: PRODUCT USED FOR UNKNOWN INDICATION
     Dosage: UNK
     Route: 065
     Dates: start: 20120322
  4. RABEPRAZOLE SODIUM [Concomitant]
  5. CANDESARTAN CILEXETIL [Concomitant]
  6. TRAMADOL HYDROCHLORIDE [Concomitant]
  7. SERTRALINE HYDROCHLORIDE [Concomitant]

REACTIONS (6)
  - PRURITUS [None]
  - RASH MACULAR [None]
  - SKIN EXFOLIATION [None]
  - AURICULAR SWELLING [None]
  - OEDEMA PERIPHERAL [None]
  - SWELLING FACE [None]
